FAERS Safety Report 14724011 (Version 3)
Quarter: 2018Q2

REPORT INFORMATION
  Report Type: Spontaneous
  Country: US (occurrence: US)
  Receive Date: 20180405
  Receipt Date: 20180518
  Transmission Date: 20180711
  Serious: Yes (Other)
  Sender: FDA-Public Use
  Company Number: US-VIFOR (INTERNATIONAL) INC.-VIT-2018-02971

PATIENT
  Sex: Male

DRUGS (8)
  1. CALCITRIOL. [Concomitant]
     Active Substance: CALCITRIOL
  2. VELTASSA [Suspect]
     Active Substance: PATIROMER
     Indication: HYPERKALAEMIA
     Dates: start: 201803
  3. AMLODIPINE BESILATE [Concomitant]
     Active Substance: AMLODIPINE BESYLATE
  4. SIMVASTATIN. [Concomitant]
     Active Substance: SIMVASTATIN
  5. SEVELAMER CARBONATE. [Concomitant]
     Active Substance: SEVELAMER CARBONATE
  6. SODIUM BICARBONATE. [Concomitant]
     Active Substance: SODIUM BICARBONATE
  7. COLACE [Concomitant]
     Active Substance: DOCUSATE SODIUM
  8. ALLOPURINOL. [Concomitant]
     Active Substance: ALLOPURINOL

REACTIONS (2)
  - Dialysis [Unknown]
  - Constipation [Recovered/Resolved]

NARRATIVE: CASE EVENT DATE: 2018
